FAERS Safety Report 18736583 (Version 1)
Quarter: 2021Q1

REPORT INFORMATION
  Report Type: Spontaneous
  Country: AU (occurrence: AU)
  Receive Date: 20210113
  Receipt Date: 20210113
  Transmission Date: 20210419
  Serious: Yes (Other)
  Sender: FDA-Public Use
  Company Number: AU-MYLANLABS-2021M1001764

PATIENT
  Age: 28 Year
  Sex: Female

DRUGS (4)
  1. PROCHLORPERAZINE. [Suspect]
     Active Substance: PROCHLORPERAZINE
     Indication: HYPEREMESIS GRAVIDARUM
     Route: 048
  2. GRANISETRON [Suspect]
     Active Substance: GRANISETRON
     Dosage: UNK
     Route: 062
  3. GRANISETRON [Suspect]
     Active Substance: GRANISETRON
     Indication: HYPEREMESIS GRAVIDARUM
     Dosage: AT NIGHT
     Route: 048
  4. ONDANSETRON [Suspect]
     Active Substance: ONDANSETRON
     Indication: HYPEREMESIS GRAVIDARUM
     Route: 048

REACTIONS (2)
  - Drug ineffective [Unknown]
  - Maternal exposure during pregnancy [Unknown]
